FAERS Safety Report 4497312-2 (Version None)
Quarter: 2004Q4

REPORT INFORMATION
  Report Type: 
  Country: None (occurrence: None)
  Receive Date: 20041104
  Receipt Date: 20041021
  Transmission Date: 20050328
  Serious: Yes (Hospitalization)
  Sender: FDA-Public Use
  Company Number: 240024

PATIENT
  Age: 56 Year
  Sex: Female
  Weight: 71.9 kg

DRUGS (2)
  1. ACTIVELLE [Suspect]
     Indication: ILL-DEFINED DISORDER
  2. LEVOTHYROXINE SODIUM [Concomitant]

REACTIONS (2)
  - FALL [None]
  - FRACTURE [None]
